FAERS Safety Report 5924898-0 (Version None)
Quarter: 2008Q4

REPORT INFORMATION
  Report Type: 
  Country: None (occurrence: None)
  Receive Date: 20081017
  Receipt Date: 20081017
  Transmission Date: 20090506
  Serious: Yes (Other)
  Sender: FDA-Public Use
  Company Number: None

PATIENT
  Age: 44 Year
  Sex: Male
  Weight: 84.369 kg

DRUGS (1)
  1. LEVAQUIN [Suspect]
     Indication: SINUSITIS
     Dosage: 500MG 1X DAILY PO
     Route: 048
     Dates: start: 20081005, end: 20081006

REACTIONS (15)
  - ANOREXIA [None]
  - ANXIETY [None]
  - ARTHRALGIA [None]
  - BRADYPHRENIA [None]
  - CHILLS [None]
  - COLD SWEAT [None]
  - CONSTIPATION [None]
  - DIZZINESS [None]
  - HEPATIC ENZYME INCREASED [None]
  - HYPOAESTHESIA FACIAL [None]
  - INSOMNIA [None]
  - NAUSEA [None]
  - PAIN IN EXTREMITY [None]
  - RASH ERYTHEMATOUS [None]
  - SLEEP TERROR [None]
